FAERS Safety Report 17960250 (Version 1)
Quarter: 2020Q2

REPORT INFORMATION
  Report Type: Spontaneous
  Country: NL (occurrence: NL)
  Receive Date: 20200630
  Receipt Date: 20200630
  Transmission Date: 20200714
  Serious: Yes (Hospitalization, Other)
  Sender: FDA-Public Use
  Company Number: NL-AUROBINDO-AUR-APL-2020-031434

PATIENT
  Age: 46 Year
  Sex: Male
  Weight: 89 kg

DRUGS (7)
  1. METFORMINE [Concomitant]
     Active Substance: METFORMIN HYDROCHLORIDE
     Indication: PRODUCT USED FOR UNKNOWN INDICATION
     Dosage: 500 MILLIGRAM
     Route: 065
  2. METOPROLOL. [Concomitant]
     Active Substance: METOPROLOL
     Indication: PRODUCT USED FOR UNKNOWN INDICATION
     Dosage: 100 MILLIGRAM
     Route: 065
  3. ACETYLSALICYLZUUR [Concomitant]
     Active Substance: ASPIRIN
     Indication: PRODUCT USED FOR UNKNOWN INDICATION
     Dosage: 80 MILLIGRAM
     Route: 065
  4. TELMISARTAN. [Concomitant]
     Active Substance: TELMISARTAN
     Indication: PRODUCT USED FOR UNKNOWN INDICATION
     Dosage: 40 MILLIGRAM
     Route: 065
  5. LINEZOLID 600 MG FILM COATED TABLET [Suspect]
     Active Substance: LINEZOLID
     Indication: MEDIASTINITIS
     Dosage: 600 MILLIGRAM, TWO TIMES A DAY
     Route: 065
     Dates: start: 20200603
  6. ROSUVASTATIN. [Concomitant]
     Active Substance: ROSUVASTATIN
     Indication: PRODUCT USED FOR UNKNOWN INDICATION
     Dosage: 20 MILLIGRAM
     Route: 065
  7. ESOMEPRAZOLE 40MG GASTRO-RESISTANT TABLETS [Suspect]
     Active Substance: ESOMEPRAZOLE
     Indication: DIAPHRAGMATIC HERNIA
     Dosage: 40 MILLIGRAM, TWO TIMES A DAY
     Route: 065
     Dates: start: 2013, end: 20200610

REACTIONS (3)
  - Hypocalcaemia [Recovering/Resolving]
  - Hypomagnesaemia [Recovering/Resolving]
  - Hypokalaemia [Recovering/Resolving]

NARRATIVE: CASE EVENT DATE: 20200610
